FAERS Safety Report 21253557 (Version 2)
Quarter: 2023Q1

REPORT INFORMATION
  Report Type: Spontaneous
  Country: US (occurrence: US)
  Receive Date: 20220825
  Receipt Date: 20230127
  Transmission Date: 20230418
  Serious: No
  Sender: FDA-Public Use
  Company Number: US-LUNDBECK-DKLU3050746

PATIENT
  Age: 68 Year
  Sex: Female

DRUGS (2)
  1. NORTHERA [Suspect]
     Active Substance: DROXIDOPA
     Indication: Parkinson^s disease
     Route: 048
     Dates: start: 20220506
  2. NORTHERA [Suspect]
     Active Substance: DROXIDOPA
     Indication: Syncope

REACTIONS (2)
  - Acne [Not Recovered/Not Resolved]
  - Weight increased [Unknown]
